FAERS Safety Report 7920918-2 (Version None)
Quarter: 2011Q4

REPORT INFORMATION
  Report Type: 
  Country: None (occurrence: None)
  Receive Date: 20111117
  Receipt Date: 20111014
  Transmission Date: 20120403
  Serious: No
  Sender: FDA-Public Use
  Company Number: US-GLAXOSMITHKLINE-A0949145A

PATIENT
  Sex: Male

DRUGS (6)
  1. LIPITOR [Concomitant]
  2. ICAPS [Concomitant]
  3. VOTRIENT [Suspect]
     Dosage: 400MG TWICE PER DAY
     Route: 048
  4. LEVOTHYROXINE SODIUM [Concomitant]
  5. ASPIRIN [Concomitant]
  6. PLAVIX [Concomitant]

REACTIONS (1)
  - DIARRHOEA [None]
